FAERS Safety Report 8318837-5 (Version None)
Quarter: 2012Q2

REPORT INFORMATION
  Report Type: 
  Country: None (occurrence: None)
  Receive Date: 20120427
  Receipt Date: 20120423
  Transmission Date: 20120825
  Serious: Yes (Other)
  Sender: FDA-Public Use
  Company Number: JP-PFIZER INC-2012094439

PATIENT
  Age: 85 Year
  Sex: Female
  Weight: 58 kg

DRUGS (10)
  1. UNASYN [Suspect]
     Indication: INFECTION PROPHYLAXIS
     Dosage: 3 G, 1X/DAY
     Route: 041
     Dates: start: 20120313, end: 20120314
  2. NORVASC [Concomitant]
     Dosage: 5 MG, 1X/DAY
     Route: 048
  3. UNASYN [Suspect]
     Dosage: 3 G, 1X/DAY
     Route: 041
     Dates: start: 20120316
  4. LEVOTHYROXINE SODIUM [Concomitant]
     Dosage: 87.5 UG, 1X/DAY
     Route: 048
  5. LASIX [Concomitant]
     Dosage: 30 MG, 1X/DAY
     Route: 048
  6. ASPIRIN [Concomitant]
     Dosage: 100 MG, 1X/DAY
     Route: 048
  7. MIGLITOL [Concomitant]
     Dosage: 200 MG/DAY IN 3 DIVIDED DOSES
     Route: 048
  8. PROCYLIN [Concomitant]
     Dosage: 20 UG, 2X/DAY
     Route: 048
  9. MUCOSTA [Concomitant]
     Dosage: 200 MG, 1X/DAY
     Route: 048
  10. NATEGLINIDE [Concomitant]
     Dosage: 270 MG/DAY, NUMBER OF DOSES A DAY UNKNOWN
     Route: 048

REACTIONS (1)
  - NO ADVERSE EVENT [None]
